FAERS Safety Report 8479789-0 (Version None)
Quarter: 2012Q2

REPORT INFORMATION
  Report Type: 
  Country: None (occurrence: None)
  Receive Date: 20120629
  Receipt Date: 20120621
  Transmission Date: 20120825
  Serious: Yes (Other)
  Sender: FDA-Public Use
  Company Number: US-ABBOTT-12P-163-0924381-00

PATIENT
  Sex: Female
  Weight: 65.83 kg

DRUGS (9)
  1. LEVOXYL [Concomitant]
     Indication: PRODUCT USED FOR UNKNOWN INDICATION
     Dosage: 75MCG DAILY MONDAY THROUGH SATURDAY
  2. FOSAMAX [Concomitant]
     Indication: PRODUCT USED FOR UNKNOWN INDICATION
     Dosage: QWEEKLY ON SUNDAY 1/2 HR AC FOOD/DRINK/RX
  3. FOLIC ACID [Concomitant]
     Indication: PRODUCT USED FOR UNKNOWN INDICATION
  4. CITRACAL + D [Concomitant]
     Indication: PRODUCT USED FOR UNKNOWN INDICATION
     Dosage: 250/200 IU AT 2 OR MORE Q/DAILY+ GLASS OF MILK TID
  5. HUMIRA [Suspect]
     Indication: RHEUMATOID ARTHRITIS
     Dates: start: 20030314, end: 20111001
  6. METHOTREXATE [Concomitant]
     Indication: PRODUCT USED FOR UNKNOWN INDICATION
     Dosage: 6 T ON FRIDAYS
     Dates: end: 20110101
  7. ASPIRIN [Concomitant]
     Indication: PRODUCT USED FOR UNKNOWN INDICATION
     Dosage: LOW DOSE
  8. VYTORIN [Concomitant]
     Indication: PRODUCT USED FOR UNKNOWN INDICATION
     Dosage: 10/40 PO QHS
     Route: 048
  9. MULTI-VITAMIN [Concomitant]
     Indication: PRODUCT USED FOR UNKNOWN INDICATION
     Dosage: SENIOR FORMULA DAILY

REACTIONS (21)
  - ULCER [None]
  - SUBCLAVIAN STEAL SYNDROME [None]
  - RHEUMATOID ARTHRITIS [None]
  - ABDOMINAL PAIN UPPER [None]
  - PAIN [None]
  - JOINT SWELLING [None]
  - ABDOMINAL PAIN [None]
  - HYPOTHYROIDISM [None]
  - MUSCULOSKELETAL STIFFNESS [None]
  - URINARY TRACT INFECTION [None]
  - CELLULITIS [None]
  - SKIN DISCOLOURATION [None]
  - URINARY RETENTION [None]
  - BENIGN UTERINE NEOPLASM [None]
  - PERIPHERAL ARTERIAL OCCLUSIVE DISEASE [None]
  - ROAD TRAFFIC ACCIDENT [None]
  - CAROTID ARTERY STENOSIS [None]
  - BLADDER NECK SUSPENSION [None]
  - CYSTOCELE [None]
  - HYPERLIPIDAEMIA [None]
  - MUSCULOSKELETAL PAIN [None]
